FAERS Safety Report 9977536 (Version 2)
Quarter: 2014Q1

REPORT INFORMATION
  Report Type: Report from Study
  Country: US (occurrence: US)
  Receive Date: 20140306
  Receipt Date: 20140306
  Transmission Date: 20141002
  Serious: Yes (Other)
  Sender: FDA-Public Use
  Company Number: US-ABBVIE-13P-163-1138210-00

PATIENT
  Age: 71 Year
  Sex: Male
  Weight: 88.53 kg

DRUGS (9)
  1. HUMIRA [Suspect]
     Indication: CROHN^S DISEASE
     Dates: start: 20130807, end: 20130807
  2. HUMIRA [Suspect]
     Dates: start: 20130821, end: 20130821
  3. HUMIRA [Suspect]
     Dates: start: 20130904
  4. HUMIRA [Suspect]
     Route: 058
     Dates: start: 201307
  5. CELEBREX [Concomitant]
     Indication: PRODUCT USED FOR UNKNOWN INDICATION
  6. PROTONIX [Concomitant]
     Indication: PRODUCT USED FOR UNKNOWN INDICATION
  7. ZOCEN [Concomitant]
     Indication: PRODUCT USED FOR UNKNOWN INDICATION
  8. JANOVIA [Concomitant]
     Indication: PRODUCT USED FOR UNKNOWN INDICATION
  9. NIZOIAL [Concomitant]
     Indication: PRODUCT USED FOR UNKNOWN INDICATION

REACTIONS (2)
  - Cataract [Unknown]
  - Injection site pain [Not Recovered/Not Resolved]
